FAERS Safety Report 4377567-5 (Version None)
Quarter: 2004Q2

REPORT INFORMATION
  Report Type: 
  Country: None (occurrence: None)
  Receive Date: 20040609
  Receipt Date: 20040308
  Transmission Date: 20050107
  Serious: No
  Sender: FDA-Public Use
  Company Number: PHEH2004US01093

PATIENT
  Age: 66 Year
  Sex: Female

DRUGS (10)
  1. GLEEVEC [Suspect]
     Indication: CHRONIC MYELOID LEUKAEMIA
     Dosage: 500 MG QD; ORAL
     Route: 048
     Dates: start: 20030301, end: 20031201
  2. GLEEVEC [Suspect]
     Indication: CHRONIC MYELOID LEUKAEMIA
     Dosage: 500 MG, QD; ORAL
     Route: 048
     Dates: start: 20031201
  3. INDERAL [Concomitant]
  4. CALCIUM [Concomitant]
  5. PREMARIN [Concomitant]
  6. ACETAMINOPHEN [Concomitant]
  7. IBUPROFEN [Concomitant]
  8. VALPROATE SODIUM [Concomitant]
  9. LOPERAMIDE HCL [Concomitant]
  10. ANTIHISTAMINICS (ANTIHISTAMINICS) [Concomitant]

REACTIONS (5)
  - ARTHRALGIA [None]
  - FATIGUE [None]
  - GASTRITIS [None]
  - NAUSEA [None]
  - PRURITUS [None]
